FAERS Safety Report 12273199 (Version 1)
Quarter: 2016Q2

REPORT INFORMATION
  Report Type: Spontaneous
  Country: US (occurrence: US)
  Receive Date: 20160415
  Receipt Date: 20160415
  Transmission Date: 20160815
  Serious: No
  Sender: FDA-Public Use
  Company Number: US-ROCHE-1142695

PATIENT
  Sex: Male

DRUGS (1)
  1. PEGASYS [Suspect]
     Active Substance: PEGINTERFERON ALFA-2A
     Indication: CHRONIC HEPATITIS C
     Route: 058
     Dates: start: 20121002

REACTIONS (5)
  - Abdominal pain upper [Unknown]
  - Chills [Unknown]
  - Hyperhidrosis [Unknown]
  - Headache [Unknown]
  - Pyrexia [Unknown]
